FAERS Safety Report 7652250-9 (Version None)
Quarter: 2011Q3

REPORT INFORMATION
  Report Type: 
  Country: None (occurrence: None)
  Receive Date: 20110803
  Receipt Date: 20110722
  Transmission Date: 20111222
  Serious: Yes (Hospitalization)
  Sender: FDA-Public Use
  Company Number: JP-ELI_LILLY_AND_COMPANY-JP201107006691

PATIENT
  Age: 75 Year
  Sex: Male

DRUGS (4)
  1. KINEDAK [Concomitant]
     Dosage: UNK
     Route: 048
     Dates: end: 20110721
  2. HUMALOG MIX 50/50 [Suspect]
     Dosage: UNK
     Route: 058
     Dates: end: 20110721
  3. LIPITOR [Concomitant]
     Dosage: UNK
     Route: 048
     Dates: end: 20110721
  4. METFORMIN HYDROCHLORIDE [Concomitant]
     Indication: TYPE 2 DIABETES MELLITUS
     Dosage: UNK
     Route: 048
     Dates: end: 20110721

REACTIONS (1)
  - LIVER DISORDER [None]
